FAERS Safety Report 9028104 (Version 3)
Quarter: 2013Q3

REPORT INFORMATION
  Report Type: Report from Study
  Country: US (occurrence: US)
  Receive Date: 20130123
  Receipt Date: 20130715
  Transmission Date: 20140515
  Serious: Yes (Hospitalization)
  Sender: FDA-Public Use
  Company Number: US-BRISTOL-MYERS SQUIBB COMPANY-17293275

PATIENT
  Age: 66 Year
  Sex: Male
  Weight: 86.2 kg

DRUGS (1)
  1. IPILIMUMAB [Suspect]
     Indication: MALIGNANT MELANOMA
     Dosage: LAST ADMINISTERED DOSE:18-DEC-2012.?274MG
     Route: 042
     Dates: start: 20121108

REACTIONS (2)
  - Hypotension [Recovering/Resolving]
  - Fatigue [Recovering/Resolving]
